FAERS Safety Report 5985954-4 (Version None)
Quarter: 2008Q4

REPORT INFORMATION
  Report Type: 
  Country: None (occurrence: None)
  Receive Date: 20081205
  Receipt Date: 20081205
  Transmission Date: 20090506
  Serious: Yes (Life-Threatening, Other)
  Sender: FDA-Public Use
  Company Number: None

PATIENT
  Age: 37 Year
  Sex: Female
  Weight: 103.8737 kg

DRUGS (1)
  1. SEPTRA [Suspect]
     Indication: URINARY TRACT INFECTION
     Dosage: 1 TABLET 2X AY ORAL OCCURED WHILE TAKING DRUG
     Route: 048
     Dates: start: 20081104, end: 20081112

REACTIONS (1)
  - STEVENS-JOHNSON SYNDROME [None]
